FAERS Safety Report 4306598-6 (Version None)
Quarter: 2004Q1

REPORT INFORMATION
  Report Type: 
  Country: None (occurrence: None)
  Receive Date: 20040225
  Receipt Date: 20030926
  Transmission Date: 20041129
  Serious: No
  Sender: FDA-Public Use
  Company Number: US-BRISTOL-MYERS SQUIBB COMPANY-12395562

PATIENT
  Age: 76 Year
  Sex: Female
  Weight: 43 kg

DRUGS (1)
  1. EXCEDRIN (MIGRAINE) [Suspect]
     Indication: HEADACHE
     Route: 048
     Dates: start: 20030921, end: 20030921

REACTIONS (4)
  - APHONIA [None]
  - FOREIGN BODY TRAUMA [None]
  - PHARYNGOLARYNGEAL PAIN [None]
  - VOMITING [None]
